FAERS Safety Report 6464076-2 (Version None)
Quarter: 2009Q4

REPORT INFORMATION
  Report Type: 
  Country: None (occurrence: None)
  Receive Date: 20091130
  Receipt Date: 20091130
  Transmission Date: 20100525
  Serious: Yes (Death, Hospitalization)
  Sender: FDA-Public Use
  Company Number: None

PATIENT
  Age: 89 Year
  Sex: Male
  Weight: 78.0187 kg

DRUGS (1)
  1. DEPAKOTE [Suspect]
     Indication: AFFECTIVE DISORDER
     Dosage: 125 MG 3X/DAY PO
     Route: 048
     Dates: start: 20070809, end: 20081212

REACTIONS (1)
  - PANCREATITIS ACUTE [None]
